FAERS Safety Report 6895026-2 (Version None)
Quarter: 2010Q3

REPORT INFORMATION
  Report Type: 
  Country: None (occurrence: None)
  Receive Date: 20100802
  Receipt Date: 20100729
  Transmission Date: 20110219
  Serious: Yes (Hospitalization)
  Sender: FDA-Public Use
  Company Number: AU-ELI_LILLY_AND_COMPANY-AU201007007383

PATIENT
  Sex: Male

DRUGS (8)
  1. GEMCITABINE HCL [Suspect]
     Indication: PANCREATIC CARCINOMA
     Dosage: 2228 MG, UNKNOWN
     Route: 065
     Dates: start: 20100325
  2. PACLITAXEL [Suspect]
     Indication: PANCREATIC CARCINOMA
     Dosage: 125 MG/M2, UNKNOWN
     Route: 065
     Dates: start: 20100325
  3. DEXAMETHASONE [Concomitant]
     Indication: PROPHYLAXIS
     Dosage: UNK, UNKNOWN
     Route: 065
  4. TROPISETRON [Concomitant]
     Indication: PROPHYLAXIS
     Dosage: UNK, UNKNOWN
     Route: 065
  5. OXYCONTIN [Concomitant]
     Indication: PAIN
     Dosage: 10 MG, UNKNOWN
     Route: 048
     Dates: start: 20100304
  6. AMOXICILLIN AND CLAVULANATE POTASSIUM [Concomitant]
     Dosage: UNK, UNKNOWN
     Route: 065
     Dates: start: 20100101
  7. PANCRELIPASE [Concomitant]
     Dosage: UNK, UNKNOWN
     Route: 065
     Dates: start: 20100101
  8. CEFTRIAXONE [Concomitant]
     Dosage: UNK, UNKNOWN
     Route: 065
     Dates: start: 20100101

REACTIONS (1)
  - DEHYDRATION [None]
